APPROVED DRUG PRODUCT: ESZOPICLONE
Active Ingredient: ESZOPICLONE
Strength: 3MG
Dosage Form/Route: TABLET;ORAL
Application: A091024 | Product #003 | TE Code: AB
Applicant: DR REDDYS LABORATORIES LTD
Approved: Apr 15, 2014 | RLD: No | RS: No | Type: RX